FAERS Safety Report 22293011 (Version 4)
Quarter: 2023Q2

REPORT INFORMATION
  Report Type: Spontaneous
  Country: AT (occurrence: AT)
  Receive Date: 20230508
  Receipt Date: 20230617
  Transmission Date: 20230721
  Serious: Yes (Disabling)
  Sender: FDA-Public Use
  Company Number: None

PATIENT
  Age: 56 Year
  Sex: Female
  Weight: 65 kg

DRUGS (1)
  1. PROLIA [Suspect]
     Active Substance: DENOSUMAB
     Indication: Breast cancer
     Dosage: UNK, Q6MO
     Route: 058
     Dates: start: 201810, end: 202210

REACTIONS (1)
  - Tooth resorption [Not Recovered/Not Resolved]

NARRATIVE: CASE EVENT DATE: 20220101
